FAERS Safety Report 4975868-0 (Version None)
Quarter: 2006Q2

REPORT INFORMATION
  Report Type: 
  Country: None (occurrence: None)
  Receive Date: 20060411
  Receipt Date: 20060324
  Transmission Date: 20061013
  Serious: Yes (Other)
  Sender: FDA-Public Use
  Company Number: USA0509108158

PATIENT
  Age: 57 Year
  Sex: Male

DRUGS (8)
  1. HUMULIN N [Suspect]
     Indication: DIABETES MELLITUS
     Dates: end: 20040201
  2. HUMULIN L [Suspect]
  3. HUMULIN R [Suspect]
  4. HUMULIN U [Suspect]
  5. HUMALOG MIX 75/25 [Suspect]
  6. INSULIN GLARGINE (INSULIN GLARGINE) [Concomitant]
  7. GLYBURIDE [Concomitant]
  8. PREDNISONE TAB [Concomitant]

REACTIONS (21)
  - ABDOMINAL DISTENSION [None]
  - ABDOMINAL PAIN UPPER [None]
  - ALLERGY TO CHEMICALS [None]
  - BLOOD GLUCOSE DECREASED [None]
  - BLOOD IMMUNOGLOBULIN A DECREASED [None]
  - BLOOD IMMUNOGLOBULIN E DECREASED [None]
  - BLOOD IMMUNOGLOBULIN G DECREASED [None]
  - BLOOD IMMUNOGLOBULIN M DECREASED [None]
  - DEPRESSED LEVEL OF CONSCIOUSNESS [None]
  - DIARRHOEA [None]
  - DRUG HYPERSENSITIVITY [None]
  - DRY MOUTH [None]
  - FLATULENCE [None]
  - HYPERSENSITIVITY [None]
  - IMMUNODEFICIENCY [None]
  - LOSS OF CONSCIOUSNESS [None]
  - OBSTRUCTIVE AIRWAYS DISORDER [None]
  - PYREXIA [None]
  - RETCHING [None]
  - SWOLLEN TONGUE [None]
  - VOMITING [None]
